FAERS Safety Report 5970243-4 (Version None)
Quarter: 2008Q4

REPORT INFORMATION
  Report Type: 
  Country: None (occurrence: None)
  Receive Date: 20081126
  Receipt Date: 20081119
  Transmission Date: 20090506
  Serious: Yes (Hospitalization)
  Sender: FDA-Public Use
  Company Number: DE-PFIZER INC-2008098142

PATIENT
  Sex: Female

DRUGS (10)
  1. CELEBREX [Suspect]
     Indication: SCIATICA
     Route: 048
     Dates: start: 20081028, end: 20081117
  2. CELEBREX [Suspect]
     Indication: INTERVERTEBRAL DISC PROTRUSION
  3. ARLEVERT [Suspect]
  4. FRAXIPARIN [Concomitant]
  5. PANTOZOL [Concomitant]
  6. ORTOTON [Concomitant]
  7. LEVOTHYROXINE SODIUM [Concomitant]
  8. VALSARTAN [Concomitant]
  9. BISOPROLOL FUMARATE [Concomitant]
  10. NOVALGIN [Concomitant]

REACTIONS (5)
  - ASTHENIA [None]
  - DIZZINESS [None]
  - HYPERTENSIVE CRISIS [None]
  - NAUSEA [None]
  - NERVOUSNESS [None]
